FAERS Safety Report 18467095 (Version 2)
Quarter: 2020Q4

REPORT INFORMATION
  Report Type: Spontaneous
  Country: FR (occurrence: FR)
  Receive Date: 20201105
  Receipt Date: 20201119
  Transmission Date: 20210114
  Serious: Yes (Life-Threatening)
  Sender: FDA-Public Use
  Company Number: FR-EMD SERONO-E2B_90081016

PATIENT
  Age: 67 Year
  Sex: Female
  Weight: 88 kg

DRUGS (22)
  1. LYRICA [Concomitant]
     Active Substance: PREGABALIN
     Indication: SUICIDE ATTEMPT
     Route: 048
  2. DULOXETINE                         /01749302/ [Concomitant]
     Active Substance: DULOXETINE
     Route: 048
     Dates: start: 20200817, end: 20200817
  3. VALIUM [Concomitant]
     Active Substance: DIAZEPAM
     Route: 048
     Dates: start: 20200817, end: 20200817
  4. ELIQUIS [Concomitant]
     Active Substance: APIXABAN
     Route: 048
     Dates: start: 20200817, end: 20200817
  5. ACUPAN [Concomitant]
     Active Substance: NEFOPAM HYDROCHLORIDE
     Indication: PRODUCT USED FOR UNKNOWN INDICATION
  6. IMOVANE [Concomitant]
     Active Substance: ZOPICLONE
     Indication: SUICIDE ATTEMPT
     Dosage: 7 DOSAGE FORMS
     Route: 048
     Dates: start: 20200817, end: 20200817
  7. OXYNORM [Concomitant]
     Active Substance: OXYCODONE HYDROCHLORIDE
     Indication: PRODUCT USED FOR UNKNOWN INDICATION
  8. ZOPICLONE [Concomitant]
     Active Substance: ZOPICLONE
     Indication: PRODUCT USED FOR UNKNOWN INDICATION
  9. MIANSERINE [Concomitant]
     Active Substance: MIANSERIN HYDROCHLORIDE
     Indication: SUICIDE ATTEMPT
     Route: 048
     Dates: start: 20200817, end: 20200817
  10. DULOXETINE                         /01749302/ [Concomitant]
     Active Substance: DULOXETINE
     Indication: SUICIDE ATTEMPT
     Route: 048
  11. MODOPAR [Concomitant]
     Active Substance: BENSERAZIDE HYDROCHLORIDE\LEVODOPA
     Indication: SUICIDE ATTEMPT
     Dosage: 125 (UNSPECIFIED UNITS)
     Route: 048
     Dates: start: 20200817, end: 20200817
  12. DUROGESIC [Concomitant]
     Active Substance: FENTANYL
     Indication: PRODUCT USED FOR UNKNOWN INDICATION
     Dosage: 25 MCG/ H + 1 MCG / HX 1 / 72 H
  13. SYMBICORT [Concomitant]
     Active Substance: BUDESONIDE\FORMOTEROL FUMARATE DIHYDRATE
     Indication: PRODUCT USED FOR UNKNOWN INDICATION
  14. TRANSIPEG                          /00754501/ [Concomitant]
     Active Substance: POLYETHYLENE GLYCOL 3350
     Indication: PRODUCT USED FOR UNKNOWN INDICATION
  15. FLECTOR                            /00372302/ [Concomitant]
     Active Substance: DICLOFENAC SODIUM
     Indication: PRODUCT USED FOR UNKNOWN INDICATION
  16. METFORMIN [Suspect]
     Active Substance: METFORMIN HYDROCHLORIDE
     Indication: SUICIDE ATTEMPT
     Route: 048
  17. ELIQUIS [Concomitant]
     Active Substance: APIXABAN
     Indication: SUICIDE ATTEMPT
     Route: 048
     Dates: start: 201912
  18. ENALAPRIL [Concomitant]
     Active Substance: ENALAPRIL
     Indication: PRODUCT USED FOR UNKNOWN INDICATION
  19. APOMORPHINE [Concomitant]
     Active Substance: APOMORPHINE
     Indication: PRODUCT USED FOR UNKNOWN INDICATION
     Dosage: 6 MG PER HOUR BETWEEN 6 AM TO 10 PM AND 35 MG PER HOUR BETWEEN 10 PM TO 6 AM
  20. METFORMIN [Suspect]
     Active Substance: METFORMIN HYDROCHLORIDE
     Route: 048
     Dates: start: 20200817, end: 20200817
  21. LYRICA [Concomitant]
     Active Substance: PREGABALIN
     Route: 048
     Dates: start: 20200817, end: 20200817
  22. VALIUM [Concomitant]
     Active Substance: DIAZEPAM
     Indication: SUICIDE ATTEMPT
     Route: 048

REACTIONS (2)
  - Lactic acidosis [Recovered/Resolved]
  - Poisoning deliberate [Recovered/Resolved]

NARRATIVE: CASE EVENT DATE: 20200817
